FAERS Safety Report 14503129 (Version 3)
Quarter: 2019Q1

REPORT INFORMATION
  Report Type: Spontaneous
  Country: US (occurrence: US)
  Receive Date: 20180208
  Receipt Date: 20190221
  Transmission Date: 20190417
  Serious: No
  Sender: FDA-Public Use
  Company Number: US-PFIZER INC-2018054638

PATIENT
  Age: 42 Year
  Sex: Female

DRUGS (3)
  1. LYRICA [Suspect]
     Active Substance: PREGABALIN
     Dosage: 100 MG, 3X/DAY
     Route: 048
  2. LYRICA [Suspect]
     Active Substance: PREGABALIN
     Dosage: UNK, 3X/DAY (150-300 MG TOTAL) BY MOUTH 3 TIMES DAILY 1 PILL AM, 1 PILL MIDDAY, 2 PILLS AT NIGHT
     Route: 048
  3. LYRICA [Suspect]
     Active Substance: PREGABALIN
     Dosage: UNK, 3X/DAY (150-300 MG TOTAL) BY MOUTH 3 TIMES DAILY 1 PILL AM, 1 PILL MIDDAY, 2 PILLS AT NIGHT
     Route: 048
     Dates: start: 20190130

REACTIONS (3)
  - Intentional product use issue [Unknown]
  - Peripheral swelling [Unknown]
  - Dizziness [Unknown]
